FAERS Safety Report 6678622-7 (Version None)
Quarter: 2010Q2

REPORT INFORMATION
  Report Type: 
  Country: None (occurrence: None)
  Receive Date: 20100412
  Receipt Date: 20100412
  Transmission Date: 20101027
  Serious: Yes (Life-Threatening, Hospitalization)
  Sender: FDA-Public Use
  Company Number: None

PATIENT
  Age: 49 Year
  Sex: Male
  Weight: 105.4 kg

DRUGS (1)
  1. BACTRIM [Suspect]

REACTIONS (2)
  - ACUTE HEPATIC FAILURE [None]
  - LETHARGY [None]
